FAERS Safety Report 6301895-7 (Version None)
Quarter: 2009Q3

REPORT INFORMATION
  Report Type: 
  Country: None (occurrence: None)
  Receive Date: 20090807
  Receipt Date: 20090730
  Transmission Date: 20100115
  Serious: Yes (Hospitalization, Other)
  Sender: FDA-Public Use
  Company Number: DE-ROCHE-647185

PATIENT
  Age: 64 Year
  Sex: Male
  Weight: 73 kg

DRUGS (4)
  1. DIAZEPAM [Suspect]
     Indication: SEDATION
     Route: 065
     Dates: start: 20090702, end: 20090706
  2. RITUXIMAB [Suspect]
     Indication: CHRONIC LYMPHOCYTIC LEUKAEMIA
     Dosage: LAST DOSE PRIOR TO SAE: 01 JULY 2009
     Route: 042
     Dates: start: 20090604
  3. FLUDARABINE PHOSPHATE [Suspect]
     Indication: CHRONIC LYMPHOCYTIC LEUKAEMIA
     Dosage: LAST DOSE PRIOR TO SAE: 03 JULY 2009
     Route: 042
     Dates: start: 20090608
  4. CYCLOPHOSPHAMIDE [Suspect]
     Indication: CHRONIC LYMPHOCYTIC LEUKAEMIA
     Dosage: LAST DOSE PRIOR TO SAE: 03 JULY 2009.
     Route: 042
     Dates: start: 20090608

REACTIONS (3)
  - FEBRILE INFECTION [None]
  - HICCUPS [None]
  - SYNCOPE [None]
